FAERS Safety Report 6050258-0 (Version None)
Quarter: 2009Q1

REPORT INFORMATION
  Report Type: 
  Country: None (occurrence: None)
  Receive Date: 20090126
  Receipt Date: 20090116
  Transmission Date: 20090719
  Serious: Yes (Hospitalization)
  Sender: FDA-Public Use
  Company Number: JP-AMGEN-US326176

PATIENT
  Age: 45 Year
  Sex: Female

DRUGS (6)
  1. ENBREL [Suspect]
     Indication: RHEUMATOID ARTHRITIS
     Route: 058
     Dates: start: 20061018
  2. ZETIA [Concomitant]
     Route: 048
  3. PREDONINE [Concomitant]
     Route: 048
     Dates: end: 20081206
  4. ACTONEL [Concomitant]
     Route: 048
  5. METOLATE [Concomitant]
     Dosage: UNSPECIFIED
     Route: 048
     Dates: end: 20081206
  6. FOLIAMIN [Concomitant]
     Route: 048
     Dates: end: 20081206

REACTIONS (1)
  - PNEUMOTHORAX [None]
